FAERS Safety Report 8558895-6 (Version None)
Quarter: 2012Q3

REPORT INFORMATION
  Report Type: 
  Country: None (occurrence: None)
  Receive Date: 20120801
  Receipt Date: 20120727
  Transmission Date: 20120928
  Serious: Yes (Disabling)
  Sender: FDA-Public Use
  Company Number: US-009507513-1207USA011549

PATIENT

DRUGS (2)
  1. SAPHRIS [Suspect]
     Indication: BIPOLAR DISORDER
     Dosage: UNK
     Route: 048
     Dates: start: 20111005, end: 20120607
  2. SAPHRIS [Suspect]
     Indication: ANXIETY DISORDER

REACTIONS (4)
  - TREMOR [None]
  - ATAXIA [None]
  - MUSCLE RIGIDITY [None]
  - INCORRECT ROUTE OF DRUG ADMINISTRATION [None]
